FAERS Safety Report 6755970-3 (Version None)
Quarter: 2010Q2

REPORT INFORMATION
  Report Type: 
  Country: None (occurrence: None)
  Receive Date: 20100604
  Receipt Date: 20100524
  Transmission Date: 20101027
  Serious: Yes (Hospitalization, Other)
  Sender: FDA-Public Use
  Company Number: PHHY2010CN34341

PATIENT
  Age: 36 Year
  Sex: Female

DRUGS (1)
  1. CARBAMAZEPINE [Suspect]
     Indication: HERPES ZOSTER
     Dosage: UNK,UNK
     Dates: start: 20020217, end: 20020309

REACTIONS (20)
  - ALANINE AMINOTRANSFERASE INCREASED [None]
  - ASPARTATE AMINOTRANSFERASE INCREASED [None]
  - ASTHENIA [None]
  - BLISTER [None]
  - CONJUNCTIVAL HYPERAEMIA [None]
  - DISCOMFORT [None]
  - ERYTHEMA [None]
  - EYE DISCHARGE [None]
  - FEELING COLD [None]
  - GAIT DISTURBANCE [None]
  - HEADACHE [None]
  - MOUTH ULCERATION [None]
  - NECK PAIN [None]
  - NIKOLSKY'S SIGN [None]
  - ORAL PAIN [None]
  - OROPHARYNGEAL PAIN [None]
  - PYREXIA [None]
  - RASH [None]
  - TOXIC EPIDERMAL NECROLYSIS [None]
  - VULVAL ULCERATION [None]
